FAERS Safety Report 9915750 (Version 1)
Quarter: 2014Q1

REPORT INFORMATION
  Report Type: Spontaneous
  Country: DK (occurrence: None)
  Receive Date: 20140218
  Receipt Date: 20140218
  Transmission Date: 20141002
  Serious: Yes (Hospitalization, Congenital Anomaly)
  Sender: FDA-Public Use
  Company Number: 2014-000330

PATIENT
  Sex: Female

DRUGS (1)
  1. SARAFEM [Suspect]
     Indication: DEPRESSION
     Route: 064
     Dates: start: 2005

REACTIONS (3)
  - Cerebral haemorrhage foetal [None]
  - Motor dysfunction [None]
  - Maternal drugs affecting foetus [None]
